FAERS Safety Report 10353132 (Version 2)
Quarter: 2014Q3

REPORT INFORMATION
  Report Type: Report from Study
  Country: US (occurrence: US)
  Receive Date: 20140730
  Receipt Date: 20140916
  Transmission Date: 20150326
  Serious: Yes (Other)
  Sender: FDA-Public Use
  Company Number: US-TAKEDA-2014TUS006720

PATIENT
  Sex: Male

DRUGS (7)
  1. COLCRYS [Suspect]
     Active Substance: COLCHICINE
     Indication: GOUT
     Dosage: 0.6 MG, QD
     Route: 048
     Dates: start: 2013, end: 201402
  2. ULORIC [Suspect]
     Active Substance: FEBUXOSTAT
     Indication: GOUT
     Dosage: QD, UNK
     Route: 048
     Dates: start: 2013
  3. ATENOLOL. [Concomitant]
     Active Substance: ATENOLOL
     Indication: HYPERTENSION
     Dosage: UNK
     Route: 048
  4. LOSARTAN [Concomitant]
     Active Substance: LOSARTAN
     Indication: HYPERTENSION
     Dosage: UNK
     Route: 048
  5. GLEEVEC [Concomitant]
     Active Substance: IMATINIB MESYLATE
     Indication: NEOPLASM MALIGNANT
     Dosage: UNK
     Route: 048
  6. GLIMEPIRID [Concomitant]
     Indication: TYPE 2 DIABETES MELLITUS
     Dosage: UNK
     Route: 048
  7. JANUVIA [Concomitant]
     Active Substance: SITAGLIPTIN PHOSPHATE
     Indication: TYPE 2 DIABETES MELLITUS
     Dosage: UNK
     Route: 048

REACTIONS (3)
  - Diarrhoea [Recovered/Resolved]
  - Spinal fracture [Unknown]
  - Fall [Unknown]

NARRATIVE: CASE EVENT DATE: 201310
